FAERS Safety Report 6693313-4 (Version None)
Quarter: 2010Q2

REPORT INFORMATION
  Report Type: 
  Country: None (occurrence: None)
  Receive Date: 20100421
  Receipt Date: 20100421
  Transmission Date: 20101027
  Serious: No
  Sender: FDA-Public Use
  Company Number: None

PATIENT
  Age: 38 Year
  Sex: Female

DRUGS (1)
  1. MIRENA [Suspect]
     Indication: CONTRACEPTION
     Dosage: 20UG/DAY 5 YEARS INTRA-UTERINE
     Route: 015
     Dates: start: 20091106, end: 20100318

REACTIONS (1)
  - DEVICE EXPULSION [None]
